FAERS Safety Report 17215461 (Version 1)
Quarter: 2019Q4

REPORT INFORMATION
  Report Type: Report from Study
  Country: US (occurrence: US)
  Receive Date: 20191230
  Receipt Date: 20191230
  Transmission Date: 20200122
  Serious: No
  Sender: FDA-Public Use
  Company Number: US-CLOVIS ONCOLOGY-CLO-2019-002469

PATIENT
  Age: 70 Year
  Sex: Female

DRUGS (1)
  1. RUBRACA [Suspect]
     Active Substance: RUCAPARIB CAMSYLATE
     Indication: OVARIAN CANCER
     Dosage: 600 MG, DAILY
     Dates: start: 201911

REACTIONS (5)
  - Dyspnoea [Unknown]
  - Abdominal distension [Unknown]
  - Peripheral swelling [Unknown]
  - Blood test abnormal [Unknown]
  - Rash [Unknown]

NARRATIVE: CASE EVENT DATE: 201911
